FAERS Safety Report 7180477-1 (Version None)
Quarter: 2010Q4

REPORT INFORMATION
  Report Type: 
  Country: None (occurrence: None)
  Receive Date: 20101221
  Receipt Date: 20101213
  Transmission Date: 20110411
  Serious: Yes (Other)
  Sender: FDA-Public Use
  Company Number: US-PFIZER INC-2010174622

PATIENT
  Age: 61 Year
  Sex: Male

DRUGS (4)
  1. AMIODARONE HCL [Suspect]
     Indication: ATRIAL FIBRILLATION
     Dosage: UNSPECIFIED LOADING DOSE
  2. AMIODARONE HCL [Suspect]
     Dosage: 200 MG, 1X/DAY
  3. ATENOLOL [Concomitant]
  4. VERAPAMIL [Concomitant]

REACTIONS (2)
  - CARDIAC DISORDER [None]
  - HYPERTHYROIDISM [None]
